FAERS Safety Report 7583400-0 (Version None)
Quarter: 2011Q2

REPORT INFORMATION
  Report Type: 
  Country: None (occurrence: None)
  Receive Date: 20110628
  Receipt Date: 20110628
  Transmission Date: 20111010
  Serious: Yes (Death)
  Sender: FDA-Public Use
  Company Number: None

PATIENT
  Age: 48 Year
  Sex: Male

DRUGS (2)
  1. REVLIMID [Suspect]
     Indication: ACUTE MYELOID LEUKAEMIA
     Dosage: REVLIMID 50 MG DAILY X21D/28D ORALLY
     Route: 048
     Dates: start: 20110616, end: 20110619
  2. REVLIMID [Suspect]
     Dosage: REVLIMID 25 MG DAILY X21D/28D ORALLY
     Route: 048
     Dates: start: 20110621, end: 20110622

REACTIONS (7)
  - INTERNATIONAL NORMALISED RATIO INCREASED [None]
  - DYSPNOEA [None]
  - METABOLIC ACIDOSIS [None]
  - CARDIAC ARREST [None]
  - FATIGUE [None]
  - WHITE BLOOD CELL COUNT INCREASED [None]
  - HYPERHIDROSIS [None]
